FAERS Safety Report 21795272 (Version 1)
Quarter: 2022Q4

REPORT INFORMATION
  Report Type: Spontaneous
  Country: US (occurrence: None)
  Receive Date: 20221228
  Receipt Date: 20221228
  Transmission Date: 20230113
  Serious: Yes (Hospitalization)
  Sender: FDA-Public Use
  Company Number: None

PATIENT
  Age: 55 Year
  Sex: Female

DRUGS (1)
  1. DIMETHYL FUMARATE [Suspect]
     Active Substance: DIMETHYL FUMARATE
     Dosage: FREQUENCY : TWICE A DAY;?
     Route: 048
     Dates: start: 2021

REACTIONS (8)
  - Hemiparesis [None]
  - Hypoaesthesia [None]
  - Urinary incontinence [None]
  - Discomfort [None]
  - Inappropriate schedule of product administration [None]
  - Balance disorder [None]
  - Hypersomnia [None]
  - Off label use [None]

NARRATIVE: CASE EVENT DATE: 20221208
